FAERS Safety Report 5706954-5 (Version None)
Quarter: 2008Q2

REPORT INFORMATION
  Report Type: 
  Country: None (occurrence: None)
  Receive Date: 20080416
  Receipt Date: 20080402
  Transmission Date: 20081010
  Serious: Yes (Other)
  Sender: FDA-Public Use
  Company Number: SE-AMGEN-UK266725

PATIENT
  Sex: Female

DRUGS (1)
  1. NEUPOGEN [Suspect]
     Indication: NEUTROPENIA
     Dates: end: 20080201

REACTIONS (2)
  - NEUTROPHIL COUNT DECREASED [None]
  - THERAPEUTIC RESPONSE DECREASED [None]
